FAERS Safety Report 6125147-3 (Version None)
Quarter: 2009Q1

REPORT INFORMATION
  Report Type: 
  Country: None (occurrence: None)
  Receive Date: 20090317
  Receipt Date: 20090302
  Transmission Date: 20090719
  Serious: Yes (Hospitalization)
  Sender: FDA-Public Use
  Company Number: 2009000641

PATIENT
  Age: 68 Year
  Sex: Male
  Weight: 97.5 kg

DRUGS (11)
  1. ERLOTINIB (ERLOTINIB) (TABLET) (ERLOTINIB) [Suspect]
     Indication: NON-SMALL CELL LUNG CANCER
     Dosage: 150 MG, QD, ORAL
     Route: 048
     Dates: start: 20080621
  2. DIGOXIN [Concomitant]
  3. ANZEMET [Concomitant]
  4. IMODIUM [Concomitant]
  5. FUROSEMIDE [Concomitant]
  6. AMIODARONE (AMIODARONE) [Concomitant]
  7. POTASSIUM (POTASSIUM) [Concomitant]
  8. AMBIEN (ZOLPIDEN TARTRATE) [Concomitant]
  9. COUMADIN [Concomitant]
  10. XANAX [Concomitant]
  11. PRILOSEC [Concomitant]

REACTIONS (1)
  - PLEURAL EFFUSION [None]
